FAERS Safety Report 9453024 (Version 1)
Quarter: 2013Q3

REPORT INFORMATION
  Report Type: Spontaneous
  Country: CA (occurrence: CA)
  Receive Date: 20130812
  Receipt Date: 20130812
  Transmission Date: 20140515
  Serious: Yes (Death, Hospitalization)
  Sender: FDA-Public Use
  Company Number: CA-CUBIST PHARMACEUTICAL, INC.-2012S1000755

PATIENT
  Age: 51 Year
  Sex: Male

DRUGS (10)
  1. CUBICIN [Suspect]
     Indication: PANCREATITIS NECROTISING
     Dosage: 500 MG, Q48H
     Route: 042
     Dates: start: 20120828, end: 20120904
  2. CUBICIN [Suspect]
     Indication: RETROPERITONEAL ABSCESS
  3. CUBICIN [Suspect]
     Indication: OFF LABEL USE
  4. MEROPENEM [Concomitant]
     Indication: PANCREATITIS NECROTISING
     Dosage: UNK
     Dates: start: 20120828
  5. MEROPENEM [Concomitant]
     Indication: RETROPERITONEAL ABSCESS
     Dosage: UNK
     Dates: start: 201112
  6. MEROPENEM [Concomitant]
     Dosage: UNK
     Dates: start: 201209
  7. FLUCONAZOLE [Concomitant]
     Indication: PANCREATITIS NECROTISING
     Dosage: UNK
     Dates: start: 20120828
  8. FLUCONAZOLE [Concomitant]
     Indication: RETROPERITONEAL ABSCESS
  9. SALBUTAMOL [Concomitant]
  10. ZOPICLONE [Concomitant]

REACTIONS (2)
  - Haemoglobin decreased [Recovered/Resolved]
  - Platelet count decreased [Recovered/Resolved]
